FAERS Safety Report 8922805 (Version 4)
Quarter: 2013Q4

REPORT INFORMATION
  Report Type: Report from Study
  Country: CA (occurrence: CA)
  Receive Date: 20121123
  Receipt Date: 20131118
  Transmission Date: 20140711
  Serious: Yes (Hospitalization)
  Sender: FDA-Public Use
  Company Number: CA-ROCHE-1156561

PATIENT
  Age: 65 Year
  Sex: Female
  Weight: 78 kg

DRUGS (16)
  1. ACTEMRA [Suspect]
     Indication: RHEUMATOID ARTHRITIS
     Route: 042
     Dates: start: 20120319
  2. ACTEMRA [Suspect]
     Route: 042
     Dates: start: 20120416
  3. ACTEMRA [Suspect]
     Route: 042
     Dates: start: 20120517
  4. ACTEMRA [Suspect]
     Route: 042
     Dates: start: 20120614
  5. ACTEMRA [Suspect]
     Route: 042
     Dates: start: 20120719
  6. ACTEMRA [Suspect]
     Route: 042
     Dates: start: 20120816
  7. ACTEMRA [Suspect]
     Route: 042
     Dates: start: 20121113
  8. ACTEMRA [Suspect]
     Route: 042
     Dates: start: 20130404
  9. ACTEMRA [Suspect]
     Route: 042
     Dates: start: 20130502
  10. ACTEMRA [Suspect]
     Route: 042
  11. ACTEMRA [Suspect]
     Route: 042
     Dates: start: 20131017
  12. METHOTREXATE [Suspect]
     Indication: PRODUCT USED FOR UNKNOWN INDICATION
     Route: 065
  13. PLAQUENIL [Concomitant]
     Route: 065
  14. FOLIC ACID [Concomitant]
     Route: 065
  15. DETROL [Concomitant]
     Route: 065
  16. K-DUR [Concomitant]
     Route: 065

REACTIONS (5)
  - Weight decreased [Unknown]
  - White blood cell count decreased [Unknown]
  - Hepatic enzyme decreased [Unknown]
  - Hepatic enzyme increased [Recovering/Resolving]
  - Feeling abnormal [Unknown]
